FAERS Safety Report 12747456 (Version 1)
Quarter: 2016Q3

REPORT INFORMATION
  Report Type: Spontaneous
  Country: US (occurrence: US)
  Receive Date: 20160915
  Receipt Date: 20160915
  Transmission Date: 20161109
  Serious: No
  Sender: FDA-Public Use
  Company Number: US-JAZZ-2016-US-009719

PATIENT
  Sex: Female

DRUGS (27)
  1. PROVIGIL [Concomitant]
     Active Substance: MODAFINIL
  2. EXCEDRIN [Concomitant]
     Active Substance: ACETAMINOPHEN\ASPIRIN\CAFFEINE
  3. BENADRYL ALLERGY [Concomitant]
     Active Substance: DIPHENHYDRAMINE HYDROCHLORIDE
  4. FLUTICASONE PROPIONATE. [Concomitant]
     Active Substance: FLUTICASONE PROPIONATE
  5. LUNESTA [Concomitant]
     Active Substance: ESZOPICLONE
  6. ZANTAC [Concomitant]
     Active Substance: RANITIDINE HYDROCHLORIDE
  7. DICYCLOMINE [Concomitant]
     Active Substance: DICYCLOMINE HYDROCHLORIDE
  8. CLONAZEPAM. [Concomitant]
     Active Substance: CLONAZEPAM
  9. RANITIDINE. [Concomitant]
     Active Substance: RANITIDINE
  10. ZOLOFT [Concomitant]
     Active Substance: SERTRALINE HYDROCHLORIDE
  11. XYREM [Suspect]
     Active Substance: SODIUM OXYBATE
     Dosage: DOSE ADJUSTMENTS
     Route: 048
  12. XYREM [Suspect]
     Active Substance: SODIUM OXYBATE
     Dosage: 4 G, BID
     Route: 048
     Dates: start: 201511
  13. KEPPRA [Concomitant]
     Active Substance: LEVETIRACETAM
  14. AMBIEN [Concomitant]
     Active Substance: ZOLPIDEM TARTRATE
  15. VYVANSE [Concomitant]
     Active Substance: LISDEXAMFETAMINE DIMESYLATE
  16. CHLORZOXAZONE. [Concomitant]
     Active Substance: CHLORZOXAZONE
  17. DIFLUCAN [Concomitant]
     Active Substance: FLUCONAZOLE
  18. IBUPROFEN. [Concomitant]
     Active Substance: IBUPROFEN
  19. TRAMADOL. [Concomitant]
     Active Substance: TRAMADOL
  20. VENTOLIN HFA [Concomitant]
     Active Substance: ALBUTEROL SULFATE
  21. AMOXICILLIN. [Concomitant]
     Active Substance: AMOXICILLIN
  22. SKELAXIN [Concomitant]
     Active Substance: METAXALONE
  23. LORZONE [Concomitant]
     Active Substance: CHLORZOXAZONE
  24. LYRICA [Concomitant]
     Active Substance: PREGABALIN
  25. XYREM [Suspect]
     Active Substance: SODIUM OXYBATE
     Indication: NARCOLEPSY
     Dosage: 2.25 G, BID
     Route: 048
     Dates: start: 201507, end: 201507
  26. PROBIOTIC [Concomitant]
     Active Substance: PROBIOTICS NOS
  27. KLONOPIN [Concomitant]
     Active Substance: CLONAZEPAM

REACTIONS (1)
  - Upper respiratory tract infection [Not Recovered/Not Resolved]
